FAERS Safety Report 19149876 (Version 3)
Quarter: 2022Q1

REPORT INFORMATION
  Report Type: Report from Study
  Country: US (occurrence: US)
  Receive Date: 20210417
  Receipt Date: 20220125
  Transmission Date: 20220424
  Serious: No
  Sender: FDA-Public Use
  Company Number: NVSC2021US085970

PATIENT
  Sex: Female

DRUGS (1)
  1. ENTRESTO [Suspect]
     Active Substance: SACUBITRIL\VALSARTAN
     Indication: Product used for unknown indication
     Dosage: UNK UNK, BID
     Route: 048

REACTIONS (4)
  - Poor quality sleep [Unknown]
  - Pain in extremity [Unknown]
  - Fatigue [Unknown]
  - Blood cholesterol decreased [Unknown]
